FAERS Safety Report 4452896-5 (Version None)
Quarter: 2004Q3

REPORT INFORMATION
  Report Type: 
  Country: None (occurrence: None)
  Receive Date: 20040916
  Receipt Date: 20040909
  Transmission Date: 20050211
  Serious: Yes (Hospitalization)
  Sender: FDA-Public Use
  Company Number: 2004-03990

PATIENT
  Age: 84 Year
  Sex: Male

DRUGS (14)
  1. METFORMIN HCL [Suspect]
     Indication: DIABETES MELLITUS NON-INSULIN-DEPENDENT
     Dosage: ORAL
     Route: 048
  2. GLIPIZIDE [Concomitant]
  3. FLUTICASONE PROPIONATE [Concomitant]
  4. IPRATROPIUM BROMIDE [Concomitant]
  5. PIOGLITAZONE HCL [Concomitant]
  6. PREDNISONE [Concomitant]
  7. ASPIRIN [Concomitant]
  8. BETOPTIC [Concomitant]
  9. DICLOFENAC EYEDROPS (DICLOFENAC) [Concomitant]
  10. DORZOLAMIDE (DORZOLAMIDE) [Concomitant]
  11. INSULIN [Concomitant]
  12. FUROSEMIDE [Concomitant]
  13. POTASSIUM CHLORIDE [Concomitant]
  14. MONTELUKAST SODIUM (MONTELUKAST SODIUM) [Concomitant]

REACTIONS (1)
  - RESPIRATORY ALKALOSIS [None]
